FAERS Safety Report 11186125 (Version 8)
Quarter: 2015Q4

REPORT INFORMATION
  Report Type: Spontaneous
  Country: IL (occurrence: IL)
  Receive Date: 20150612
  Receipt Date: 20151203
  Transmission Date: 20160304
  Serious: Yes (Hospitalization, Other)
  Sender: FDA-Public Use
  Company Number: IL-ABBVIE-15P-082-1406206-00

PATIENT
  Sex: Female

DRUGS (2)
  1. EXVIERA [Suspect]
     Active Substance: DASABUVIR
     Indication: HEPATITIS C
     Route: 048
     Dates: start: 20150528, end: 20150620
  2. VIEKIRAX [Suspect]
     Active Substance: OMBITASVIR\PARITAPREVIR\RITONAVIR
     Indication: HEPATITIS C
     Route: 048
     Dates: start: 20150528, end: 20150620

REACTIONS (10)
  - Asthenia [Not Recovered/Not Resolved]
  - Gastric perforation [Unknown]
  - Jaundice [Unknown]
  - Blood bilirubin increased [Unknown]
  - Abdominal distension [Unknown]
  - Duodenal ulcer [Recovered/Resolved]
  - Abdominal pain [Unknown]
  - Nausea [Recovering/Resolving]
  - Somnolence [Unknown]
  - Duodenal perforation [Recovered/Resolved]
